FAERS Safety Report 7651478-1 (Version None)
Quarter: 2011Q3

REPORT INFORMATION
  Report Type: 
  Country: None (occurrence: None)
  Receive Date: 20110802
  Receipt Date: 20110727
  Transmission Date: 20111222
  Serious: Yes (Death, Other)
  Sender: FDA-Public Use
  Company Number: PHHY2011US68710

PATIENT
  Sex: Female

DRUGS (1)
  1. TOBI [Suspect]
     Indication: PULMONARY HYPERTENSION
     Dosage: 300 MG, BID

REACTIONS (2)
  - DEATH [None]
  - CIRCULATORY COLLAPSE [None]
